FAERS Safety Report 9961423 (Version 2)
Quarter: 2014Q2

REPORT INFORMATION
  Report Type: Spontaneous
  Country: US (occurrence: US)
  Receive Date: 20140305
  Receipt Date: 20140630
  Transmission Date: 20141212
  Serious: Yes (Other)
  Sender: FDA-Public Use
  Company Number: US-ASTELLAS-2014US002080

PATIENT
  Age: 70 Year
  Sex: Male

DRUGS (3)
  1. MYRBETRIQ [Suspect]
     Indication: URINARY INCONTINENCE
     Route: 048
     Dates: start: 20140213
  2. MYRBETRIQ [Suspect]
     Indication: POLLAKIURIA
     Route: 048
     Dates: start: 201406
  3. MYRBETRIQ [Suspect]
     Route: 048
     Dates: start: 201312

REACTIONS (6)
  - Iron deficiency anaemia [Unknown]
  - Blood pressure increased [Unknown]
  - Nocturia [Unknown]
  - Dry mouth [Unknown]
  - Drug ineffective [Unknown]
  - Intentional product misuse [Unknown]
